FAERS Safety Report 8838870 (Version 1)
Quarter: 2012Q4

REPORT INFORMATION
  Report Type: Spontaneous
  Country: US (occurrence: None)
  Receive Date: 20121011
  Receipt Date: 20121011
  Transmission Date: 20130627
  Serious: Yes (Hospitalization)
  Sender: FDA-Public Use
  Company Number: None

PATIENT
  Age: 50 Year
  Sex: Female
  Weight: 77 kg

DRUGS (2)
  1. REMICADE [Suspect]
     Indication: ULCERATIVE COLITIS
     Dosage: 800mg every 8 weeks IV
     Route: 042
  2. SODIUM CHLORIDE [Concomitant]

REACTIONS (8)
  - Erythema [None]
  - Flushing [None]
  - Blood pressure decreased [None]
  - Heart rate decreased [None]
  - Abdominal pain [None]
  - Vomiting [None]
  - Diarrhoea [None]
  - Infusion related reaction [None]
